FAERS Safety Report 8334677-5 (Version None)
Quarter: 2012Q2

REPORT INFORMATION
  Report Type: 
  Country: None (occurrence: None)
  Receive Date: 20120503
  Receipt Date: 20110502
  Transmission Date: 20120825
  Serious: Yes (Other)
  Sender: FDA-Public Use
  Company Number: US-TEVA-2011002159

PATIENT
  Sex: Female
  Weight: 70.824 kg

DRUGS (6)
  1. NUVIGIL [Interacting]
     Indication: BIPOLAR I DISORDER
     Dosage: 150 MILLIGRAM;
     Route: 048
     Dates: start: 20110404, end: 20110418
  2. MIRAPEX [Suspect]
     Indication: RESTLESS LEGS SYNDROME
     Dosage: .375 MILLIGRAM;
     Route: 048
     Dates: start: 20101201
  3. AMBIEN [Suspect]
     Indication: SLEEP DISORDER
     Dosage: 10 MILLIGRAM;
     Route: 048
  4. NUVIGIL [Interacting]
     Dosage: 250 MILLIGRAM;
     Route: 048
     Dates: start: 20110419, end: 20110423
  5. SEROQUEL XR [Suspect]
     Indication: SLEEP DISORDER
     Dosage: 150 MILLIGRAM;
     Route: 048
     Dates: start: 20101001
  6. ADDERALL 5 [Suspect]
     Indication: ATTENTION DEFICIT/HYPERACTIVITY DISORDER
     Dosage: 60 MILLIGRAM;
     Route: 048
     Dates: start: 20101001

REACTIONS (6)
  - DRUG INTERACTION [None]
  - WEIGHT INCREASED [None]
  - INSOMNIA [None]
  - DRUG INEFFECTIVE FOR UNAPPROVED INDICATION [None]
  - DEPRESSION [None]
  - CRYING [None]
